FAERS Safety Report 7041426-X (Version None)
Quarter: 2010Q4

REPORT INFORMATION
  Report Type: 
  Country: None (occurrence: None)
  Receive Date: 20101013
  Receipt Date: 20100903
  Transmission Date: 20110411
  Serious: Yes (Hospitalization, Other)
  Sender: FDA-Public Use
  Company Number: US-BAXTER-2009BH013293

PATIENT
  Age: 0 Day
  Sex: Male
  Weight: 2 kg

DRUGS (34)
  1. HEPARIN SODIUM INJECTION [Suspect]
     Indication: PRODUCT USED FOR UNKNOWN INDICATION
     Route: 042
     Dates: start: 20070801, end: 20071101
  2. HEPARIN SODIUM INJECTION [Suspect]
     Indication: HYPOTENSION
     Route: 042
     Dates: start: 20070801, end: 20071101
  3. HEPARIN SODIUM INJECTION [Suspect]
     Indication: INTRAVENOUS CATHETER MANAGEMENT
     Route: 042
     Dates: start: 20070801, end: 20071101
  4. HEPARIN SODIUM INJECTION [Suspect]
     Route: 041
     Dates: start: 20070801, end: 20071001
  5. HEPARIN SODIUM INJECTION [Suspect]
     Route: 041
     Dates: start: 20070801, end: 20071001
  6. HEPARIN SODIUM INJECTION [Suspect]
     Route: 041
     Dates: start: 20070801, end: 20071001
  7. HEPARIN SODIUM INJECTION [Suspect]
     Route: 041
     Dates: start: 20070801, end: 20071001
  8. HEPARIN SODIUM INJECTION [Suspect]
     Route: 041
     Dates: start: 20070801, end: 20071001
  9. HEPARIN SODIUM INJECTION [Suspect]
     Route: 041
     Dates: start: 20070801, end: 20071001
  10. HEPARIN SODIUM INJECTION [Suspect]
     Route: 041
     Dates: start: 20070801, end: 20071001
  11. HEPARIN SODIUM INJECTION [Suspect]
     Route: 041
     Dates: start: 20070801, end: 20071001
  12. HEPARIN SODIUM INJECTION [Suspect]
     Route: 041
     Dates: start: 20070801, end: 20071001
  13. HEPARIN SODIUM INJECTION [Suspect]
     Route: 042
     Dates: start: 20070801, end: 20071001
  14. HEPARIN SODIUM INJECTION [Suspect]
     Route: 042
     Dates: start: 20070801, end: 20071001
  15. HEPARIN SODIUM INJECTION [Suspect]
     Route: 042
     Dates: start: 20070801, end: 20071001
  16. AMPICILLIN [Concomitant]
     Indication: PRODUCT USED FOR UNKNOWN INDICATION
     Route: 065
     Dates: start: 20070802, end: 20070804
  17. CAFFEINE CITRATE [Concomitant]
     Indication: PRODUCT USED FOR UNKNOWN INDICATION
     Route: 065
     Dates: start: 20070802, end: 20070824
  18. RANITIDINE [Concomitant]
     Indication: PRODUCT USED FOR UNKNOWN INDICATION
     Route: 065
     Dates: start: 20070820, end: 20070910
  19. ALBUMIN ^BEHRING^ [Concomitant]
     Indication: PRODUCT USED FOR UNKNOWN INDICATION
     Route: 065
     Dates: start: 20070825, end: 20070826
  20. REGLAN [Concomitant]
     Indication: PRODUCT USED FOR UNKNOWN INDICATION
     Route: 065
     Dates: start: 20070831, end: 20071007
  21. VANCOMYCIN [Concomitant]
     Indication: PRODUCT USED FOR UNKNOWN INDICATION
     Route: 065
     Dates: start: 20070806, end: 20070809
  22. GENTAMICIN [Concomitant]
     Indication: PRODUCT USED FOR UNKNOWN INDICATION
     Route: 065
     Dates: start: 20070806, end: 20070809
  23. CLINDAMYCIN [Concomitant]
     Indication: PRODUCT USED FOR UNKNOWN INDICATION
     Route: 065
     Dates: start: 20070811, end: 20070818
  24. DOPAMINE [Concomitant]
     Indication: HYPOTENSION
     Route: 065
     Dates: start: 20070812, end: 20070814
  25. LASIX [Concomitant]
     Indication: PRODUCT USED FOR UNKNOWN INDICATION
     Route: 065
     Dates: start: 20070817
  26. LASIX [Concomitant]
     Route: 065
     Dates: start: 20070817
  27. DIGOXIN [Concomitant]
     Indication: PRODUCT USED FOR UNKNOWN INDICATION
     Route: 065
     Dates: start: 20070821
  28. CAPTOPRIL [Concomitant]
     Indication: PRODUCT USED FOR UNKNOWN INDICATION
     Route: 065
     Dates: start: 20070919
  29. FENTANYL [Concomitant]
     Indication: PRODUCT USED FOR UNKNOWN INDICATION
     Route: 065
     Dates: start: 20070821
  30. VERSED [Concomitant]
     Indication: PRODUCT USED FOR UNKNOWN INDICATION
     Route: 065
     Dates: start: 20070915
  31. PHENOBARBITAL [Concomitant]
     Indication: PRODUCT USED FOR UNKNOWN INDICATION
     Route: 065
     Dates: start: 20070920
  32. ACTIGALL [Concomitant]
     Indication: PRODUCT USED FOR UNKNOWN INDICATION
     Route: 065
     Dates: start: 20070928
  33. MICONAZOLE [Concomitant]
     Indication: PRODUCT USED FOR UNKNOWN INDICATION
     Route: 065
  34. MORPHINE [Concomitant]
     Indication: PRODUCT USED FOR UNKNOWN INDICATION
     Route: 065

REACTIONS (19)
  - ANAEMIA [None]
  - ASCITES [None]
  - BRONCHOPULMONARY DYSPLASIA [None]
  - DILATATION VENTRICULAR [None]
  - FUNGAL SKIN INFECTION [None]
  - GENERALISED OEDEMA [None]
  - HEART VALVE INCOMPETENCE [None]
  - HEPATIC FUNCTION ABNORMAL [None]
  - HEPATOMEGALY [None]
  - HYPERSENSITIVITY [None]
  - HYPONATRAEMIA [None]
  - HYPOTENSION [None]
  - JAUNDICE CHOLESTATIC [None]
  - NERVOUS SYSTEM DISORDER [None]
  - PLEURAL EFFUSION [None]
  - PULMONARY HYPERTENSION [None]
  - RESPIRATORY FAILURE [None]
  - SKIN ULCER [None]
  - THROMBOCYTOPENIA [None]
